FAERS Safety Report 6759723-1 (Version None)
Quarter: 2010Q2

REPORT INFORMATION
  Report Type: 
  Country: None (occurrence: None)
  Receive Date: 20100604
  Receipt Date: 20100524
  Transmission Date: 20101027
  Serious: Yes (Hospitalization)
  Sender: FDA-Public Use
  Company Number: 012409

PATIENT
  Sex: Male

DRUGS (1)
  1. NEUPRO [Suspect]
     Dosage: SEE IMAGE
     Route: 062

REACTIONS (6)
  - DISORIENTATION [None]
  - FATIGUE [None]
  - HALLUCINATION [None]
  - INCORRECT DRUG ADMINISTRATION DURATION [None]
  - LOWER RESPIRATORY TRACT INFECTION [None]
  - SPEECH DISORDER [None]
